FAERS Safety Report 17251623 (Version 2)
Quarter: 2020Q1

REPORT INFORMATION
  Report Type: Spontaneous
  Country: SE (occurrence: SE)
  Receive Date: 20200109
  Receipt Date: 20200117
  Transmission Date: 20200409
  Serious: Yes (Hospitalization)
  Sender: FDA-Public Use
  Company Number: SE-PFIZER INC-2020006219

PATIENT
  Age: 41 Year
  Sex: Male

DRUGS (3)
  1. LYRICA [Suspect]
     Active Substance: PREGABALIN
     Dosage: 3 DF, UNK
     Route: 048
     Dates: start: 20190206, end: 20190206
  2. QUETIAPINE. [Suspect]
     Active Substance: QUETIAPINE
     Dosage: 1000 MG, UNK
     Route: 048
     Dates: start: 20190206, end: 20190206
  3. PROPAVAN [Suspect]
     Active Substance: PROPIOMAZINE
     Dosage: 1000 MG, UNK
     Route: 048
     Dates: start: 20190206, end: 20190206

REACTIONS (5)
  - Somnolence [Unknown]
  - Intentional overdose [Unknown]
  - Fatigue [Unknown]
  - Tachycardia [Unknown]
  - Intentional self-injury [Unknown]

NARRATIVE: CASE EVENT DATE: 20190206
